FAERS Safety Report 18000814 (Version 1)
Quarter: 2020Q3

REPORT INFORMATION
  Report Type: Spontaneous
  Country: CA (occurrence: CA)
  Receive Date: 20200709
  Receipt Date: 20200709
  Transmission Date: 20201103
  Serious: Yes (Other)
  Sender: FDA-Public Use
  Company Number: CA-TEVA-2020-CA-1798017

PATIENT
  Age: 52 Year
  Sex: Female
  Weight: 97.16 kg

DRUGS (3)
  1. TEVA?RAMIPRIL [Suspect]
     Active Substance: RAMIPRIL
     Indication: HYPERTENSION
     Dosage: 10 MILLIGRAM DAILY;
     Route: 048
  2. CELEBREX [Concomitant]
     Active Substance: CELECOXIB
  3. OXYCODONE?ACETAMINOPHEN [Concomitant]
     Active Substance: ACETAMINOPHEN\OXYCODONE HYDROCHLORIDE

REACTIONS (8)
  - Skin exfoliation [Unknown]
  - Eye pruritus [Unknown]
  - Lacrimation increased [Unknown]
  - Malaise [Unknown]
  - Pruritus [Unknown]
  - Poor quality sleep [Unknown]
  - Cough [Unknown]
  - Rash erythematous [Unknown]
